FAERS Safety Report 7044115-0 (Version None)
Quarter: 2010Q4

REPORT INFORMATION
  Report Type: 
  Country: None (occurrence: None)
  Receive Date: 20101013
  Receipt Date: 20101005
  Transmission Date: 20110411
  Serious: Yes (Other)
  Sender: FDA-Public Use
  Company Number: US-PFIZER INC-2010127065

PATIENT
  Sex: Female
  Weight: 62.585 kg

DRUGS (3)
  1. CHANTIX [Suspect]
     Indication: SMOKING CESSATION THERAPY
     Dosage: 0.5 MG, DAILY
     Route: 048
     Dates: start: 20100901
  2. NEURONTIN [Concomitant]
     Indication: FIBROMYALGIA
     Dosage: UNK
  3. MILNACIPRAN [Concomitant]
     Indication: FIBROMYALGIA
     Dosage: UNK

REACTIONS (5)
  - ABNORMAL DREAMS [None]
  - ARTHRALGIA [None]
  - INTERVERTEBRAL DISC DEGENERATION [None]
  - MUSCLE SPASMS [None]
  - MUSCULOSKELETAL STIFFNESS [None]
